FAERS Safety Report 8410867-8 (Version None)
Quarter: 2012Q2

REPORT INFORMATION
  Report Type: 
  Country: None (occurrence: None)
  Receive Date: 20120605
  Receipt Date: 20120530
  Transmission Date: 20120825
  Serious: Yes (Other)
  Sender: FDA-Public Use
  Company Number: PHHY2012KR046631

PATIENT

DRUGS (4)
  1. EVEROLIMUS [Suspect]
     Indication: METASTATIC GASTRIC CANCER
     Dosage: 5 MG, Q12H
     Route: 048
  2. CAPECITABINE [Suspect]
     Dosage: 650 MG/M2, Q12H
  3. CAPECITABINE [Suspect]
     Indication: METASTATIC GASTRIC CANCER
     Dosage: 500 MG/M2, Q12H
  4. CAPECITABINE [Suspect]
     Dosage: 750 MG/M2, Q12H

REACTIONS (2)
  - HYPERGLYCAEMIA [None]
  - HYPONATRAEMIA [None]
